FAERS Safety Report 15940931 (Version 1)
Quarter: 2019Q1

REPORT INFORMATION
  Report Type: Spontaneous
  Country: FR (occurrence: FR)
  Receive Date: 20190208
  Receipt Date: 20190208
  Transmission Date: 20190417
  Serious: Yes (Other)
  Sender: FDA-Public Use
  Company Number: FR-009507513-1902FRA000412

PATIENT
  Age: 26 Year
  Sex: Male
  Weight: 100 kg

DRUGS (5)
  1. CANCIDAS [Suspect]
     Active Substance: CASPOFUNGIN ACETATE
     Indication: POST PROCEDURAL INFECTION
     Dosage: 70 MILLIGRAM, ONCE
     Route: 042
     Dates: start: 20181219, end: 20190110
  2. OFLOCET (OFLOXACIN HYDROCHLORIDE) [Suspect]
     Active Substance: OFLOXACIN
     Indication: POST PROCEDURAL INFECTION
     Dosage: 200 MILLIGRAM, Q3D
     Route: 048
     Dates: start: 20181219, end: 20190110
  3. METRONIDAZOLE. [Suspect]
     Active Substance: METRONIDAZOLE
     Indication: POST PROCEDURAL INFECTION
     Dosage: 500 MILLIGRAM, Q3D
     Route: 042
     Dates: start: 20181219, end: 20190110
  4. LOVENOX [Suspect]
     Active Substance: ENOXAPARIN SODIUM
     Indication: THROMBOSIS PROPHYLAXIS
     Dosage: 11000 INTERNATIONAL UNIT, QOD
     Route: 058
     Dates: start: 20181219, end: 20190113
  5. VANCOMYCIN MYLAN [Suspect]
     Active Substance: VANCOMYCIN
     Indication: POST PROCEDURAL INFECTION
     Dosage: 4 GRAM, QD
     Route: 042
     Dates: start: 20181219, end: 20190110

REACTIONS (1)
  - Drug reaction with eosinophilia and systemic symptoms [Recovering/Resolving]

NARRATIVE: CASE EVENT DATE: 20190110
